FAERS Safety Report 20313495 (Version 3)
Quarter: 2022Q1

REPORT INFORMATION
  Report Type: Spontaneous
  Country: US (occurrence: US)
  Receive Date: 20220109
  Receipt Date: 20220111
  Transmission Date: 20220423
  Serious: Yes (Other)
  Sender: FDA-Public Use
  Company Number: US-SA-SAC20211231000119

PATIENT
  Age: 66 Year
  Sex: Female

DRUGS (1)
  1. PLAVIX [Suspect]
     Active Substance: CLOPIDOGREL BISULFATE
     Indication: Deep vein thrombosis
     Dosage: 75 MG, QD
     Route: 048

REACTIONS (3)
  - Melaena [Unknown]
  - Faeces discoloured [Unknown]
  - Diarrhoea [Unknown]

NARRATIVE: CASE EVENT DATE: 20210101
